FAERS Safety Report 20406786 (Version 1)
Quarter: 2022Q1

REPORT INFORMATION
  Report Type: Spontaneous
  Country: US (occurrence: US)
  Receive Date: 20220131
  Receipt Date: 20220131
  Transmission Date: 20220423
  Serious: No
  Sender: FDA-Public Use
  Company Number: US-SEBELA IRELAND LIMITED-2021SEB00022

PATIENT
  Age: 79 Year
  Sex: Female

DRUGS (2)
  1. ANALPRAM HC [Suspect]
     Active Substance: HYDROCORTISONE ACETATE\PRAMOXINE HYDROCHLORIDE
     Indication: Haemorrhoids
     Dosage: UNK
     Route: 054
  2. UNSPECIFIED INJECTIONS [Concomitant]

REACTIONS (4)
  - Rash [Unknown]
  - Off label use [Unknown]
  - Product dispensing issue [Unknown]
  - Product use issue [Unknown]
